FAERS Safety Report 7793225-9 (Version None)
Quarter: 2011Q4

REPORT INFORMATION
  Report Type: 
  Country: None (occurrence: None)
  Receive Date: 20111003
  Receipt Date: 20110921
  Transmission Date: 20120403
  Serious: Yes (Hospitalization, Other)
  Sender: FDA-Public Use
  Company Number: US-ELI_LILLY_AND_COMPANY-US201109007135

PATIENT
  Sex: Female

DRUGS (3)
  1. HUMALOG [Suspect]
     Dosage: 60 U, QD
     Route: 065
     Dates: start: 20110621
  2. HUMALOG [Suspect]
     Indication: DIABETES MELLITUS
     Dosage: 60 U, QD
     Route: 065
     Dates: start: 20110621
  3. HUMULIN 70/30 [Suspect]
     Indication: DIABETES MELLITUS
     Dosage: 40 U, QD
     Route: 065

REACTIONS (9)
  - LOSS OF CONSCIOUSNESS [None]
  - BLOOD GLUCOSE INCREASED [None]
  - MEMORY IMPAIRMENT [None]
  - FATIGUE [None]
  - ANAEMIA [None]
  - MYOPIA [None]
  - VISUAL IMPAIRMENT [None]
  - OXYGEN SATURATION DECREASED [None]
  - DRUG DOSE OMISSION [None]
